FAERS Safety Report 20083233 (Version 1)
Quarter: 2021Q4

REPORT INFORMATION
  Report Type: Spontaneous
  Country: US (occurrence: US)
  Receive Date: 20211117
  Receipt Date: 20211117
  Transmission Date: 20220303
  Serious: No
  Sender: FDA-Public Use
  Company Number: US-ORGANON-O2111USA000363

PATIENT
  Sex: Female

DRUGS (1)
  1. NEXPLANON [Suspect]
     Active Substance: ETONOGESTREL
     Dosage: 1 IMPLANT (STRENGTH 68 MILLIGRAM)

REACTIONS (4)
  - Device issue [Unknown]
  - Device deployment issue [Unknown]
  - Complication associated with device [Recovered/Resolved]
  - No adverse event [Unknown]
